FAERS Safety Report 9349221 (Version 1)
Quarter: 2013Q2

REPORT INFORMATION
  Report Type: Spontaneous
  Country: UA (occurrence: UA)
  Receive Date: 20130614
  Receipt Date: 20130614
  Transmission Date: 20140414
  Serious: Yes (Other)
  Sender: FDA-Public Use
  Company Number: UA-ASTELLAS-2013EU004969

PATIENT
  Age: 18 Year
  Sex: Male

DRUGS (1)
  1. PROTOPIC [Suspect]
     Indication: DERMATITIS ATOPIC
     Dosage: UNK
     Route: 003

REACTIONS (1)
  - Rash vesicular [Not Recovered/Not Resolved]
